FAERS Safety Report 24312177 (Version 1)
Quarter: 2024Q3

REPORT INFORMATION
  Report Type: Spontaneous
  Country: US (occurrence: US)
  Receive Date: 20240912
  Receipt Date: 20240912
  Transmission Date: 20241017
  Serious: Yes (Other)
  Sender: TEVA
  Company Number: US-TEVA-VS-3238814

PATIENT
  Age: 65 Year
  Sex: Female

DRUGS (1)
  1. AUSTEDO XR [Suspect]
     Active Substance: DEUTETRABENAZINE
     Indication: Dyskinesia
     Dosage: AT BED TIME
     Route: 065

REACTIONS (9)
  - Dementia [Unknown]
  - Fall [Unknown]
  - Feeling of despair [Unknown]
  - Feeling abnormal [Unknown]
  - Crying [Unknown]
  - Product use in unapproved indication [Unknown]
  - Parkinsonism [Unknown]
  - Anxiety [Unknown]
  - Incorrect dose administered [Unknown]
